FAERS Safety Report 10239918 (Version 1)
Quarter: 2014Q2

REPORT INFORMATION
  Report Type: Spontaneous
  Country: US (occurrence: US)
  Receive Date: 20140616
  Receipt Date: 20140616
  Transmission Date: 20141212
  Serious: No
  Sender: FDA-Public Use
  Company Number: US-009507513-1406USA006420

PATIENT
  Age: 25 Year
  Sex: Female
  Weight: 59.87 kg

DRUGS (2)
  1. NEXPLANON [Suspect]
     Indication: CONTRACEPTION
     Dosage: UNK
     Route: 059
     Dates: start: 201309, end: 20140604
  2. IMPLANON [Concomitant]

REACTIONS (1)
  - Metrorrhagia [Unknown]
